FAERS Safety Report 16802024 (Version 1)
Quarter: 2019Q3

REPORT INFORMATION
  Report Type: Report from Study
  Country: CN (occurrence: CN)
  Receive Date: 20190912
  Receipt Date: 20190912
  Transmission Date: 20191005
  Serious: Yes (Hospitalization)
  Sender: FDA-Public Use
  Company Number: CN-ROCHE-2397003

PATIENT

DRUGS (5)
  1. INDOMETHACIN [INDOMETACIN] [Concomitant]
     Active Substance: INDOMETHACIN
     Route: 065
     Dates: start: 20190805
  2. VEMURAFENIB. [Suspect]
     Active Substance: VEMURAFENIB
     Indication: MALIGNANT MELANOMA
     Route: 048
     Dates: start: 20190726, end: 20190806
  3. LORATADINE. [Concomitant]
     Active Substance: LORATADINE
     Route: 065
     Dates: start: 20190806
  4. LEVOFLOXACIN. [Concomitant]
     Active Substance: LEVOFLOXACIN
     Indication: EYE PAIN
     Dosage: 1 DROP/TIME, 1 TIME/1 HOUR,
     Route: 065
     Dates: start: 20190808
  5. OFLOXACIN. [Concomitant]
     Active Substance: OFLOXACIN
     Indication: EYE PAIN
     Dosage: 1 DROP/TIME, 1 TIME/1 HOUR
     Route: 065
     Dates: start: 20190808

REACTIONS (1)
  - Dermatitis acneiform [Not Recovered/Not Resolved]

NARRATIVE: CASE EVENT DATE: 20190806
